FAERS Safety Report 5582539-9 (Version None)
Quarter: 2007Q4

REPORT INFORMATION
  Report Type: 
  Country: None (occurrence: None)
  Receive Date: 20071130
  Receipt Date: 20070315
  Transmission Date: 20080405
  Serious: Yes (Other)
  Sender: FDA-Public Use
  Company Number: WAES 0703USA03250

PATIENT
  Age: 63 Year
  Sex: Female
  Weight: 62.5964 kg

DRUGS (6)
  1. FOSAMAX [Suspect]
     Indication: OSTEOPENIA
     Dosage: SEE IMAGE
     Route: 048
     Dates: start: 19990803, end: 20010402
  2. FOSAMAX [Suspect]
     Indication: OSTEOPOROSIS
     Dosage: SEE IMAGE
     Route: 048
     Dates: start: 19990803, end: 20010402
  3. FOSAMAX [Suspect]
     Indication: OSTEOPENIA
     Dosage: SEE IMAGE
     Route: 048
     Dates: start: 20010401, end: 20060516
  4. FOSAMAX [Suspect]
     Indication: OSTEOPOROSIS
     Dosage: SEE IMAGE
     Route: 048
     Dates: start: 20010401, end: 20060516
  5. . [Concomitant]
  6. PREMARIN [Concomitant]

REACTIONS (15)
  - ANAEMIA [None]
  - ANTINUCLEAR ANTIBODY POSITIVE [None]
  - ANXIETY [None]
  - BACK PAIN [None]
  - BLOOD CHOLESTEROL INCREASED [None]
  - DEPRESSION [None]
  - EMOTIONAL DISTRESS [None]
  - KYPHOSIS [None]
  - LENTIGO [None]
  - NECK PAIN [None]
  - OSTEOMYELITIS [None]
  - OSTEONECROSIS [None]
  - RED BLOOD CELL SEDIMENTATION RATE INCREASED [None]
  - TELANGIECTASIA [None]
  - URTICARIA [None]
